FAERS Safety Report 7184583-7 (Version None)
Quarter: 2010Q4

REPORT INFORMATION
  Report Type: 
  Country: None (occurrence: None)
  Receive Date: 20101222
  Receipt Date: 20101210
  Transmission Date: 20110411
  Serious: Yes (Disabling, Other)
  Sender: FDA-Public Use
  Company Number: US-ELI_LILLY_AND_COMPANY-US201008007215

PATIENT
  Sex: Male

DRUGS (2)
  1. HUMALOG MIX 75/25 [Suspect]
     Indication: TYPE 2 DIABETES MELLITUS
     Dosage: 17 U, EACH MORNING
  2. HUMALOG MIX 75/25 [Suspect]
     Dosage: 34 U, EACH EVENING

REACTIONS (6)
  - DEVICE FAILURE [None]
  - FALL [None]
  - HUMERUS FRACTURE [None]
  - IMPAIRED HEALING [None]
  - MOBILITY DECREASED [None]
  - RADIAL NERVE INJURY [None]
